FAERS Safety Report 18597122 (Version 1)
Quarter: 2020Q4

REPORT INFORMATION
  Report Type: Report from Study
  Country: AR (occurrence: AR)
  Receive Date: 20201209
  Receipt Date: 20201209
  Transmission Date: 20210114
  Serious: Yes (Other)
  Sender: FDA-Public Use
  Company Number: NVSC2020AR205382

PATIENT
  Age: 78 Year
  Sex: Female

DRUGS (3)
  1. FORTEO [Concomitant]
     Active Substance: TERIPARATIDE
     Indication: OSTEOPOROSIS
     Dosage: UNK
     Route: 065
  2. COSENTYX [Suspect]
     Active Substance: SECUKINUMAB
     Indication: ANKYLOSING SPONDYLITIS
     Dosage: 150 MG, QMO
     Route: 058
     Dates: start: 20191119, end: 20200810
  3. COSENTYX [Suspect]
     Active Substance: SECUKINUMAB
     Dosage: 70 MG, QMO
     Route: 048
     Dates: start: 20201119

REACTIONS (4)
  - Dizziness [Not Recovered/Not Resolved]
  - Deafness [Unknown]
  - Incorrect dose administered [Unknown]
  - Hypotension [Not Recovered/Not Resolved]

NARRATIVE: CASE EVENT DATE: 201911
